FAERS Safety Report 13077858 (Version 1)
Quarter: 2017Q1

REPORT INFORMATION
  Report Type: Spontaneous
  Country: US (occurrence: US)
  Receive Date: 20170102
  Receipt Date: 20170102
  Transmission Date: 20170428
  Serious: Yes (Death, Hospitalization)
  Sender: FDA-Public Use
  Company Number: US-ASTRAZENECA-2016SF37408

PATIENT
  Age: 47 Year
  Sex: Male

DRUGS (13)
  1. FLUOXETINE [Suspect]
     Active Substance: FLUOXETINE HYDROCHLORIDE
     Route: 048
  2. AMITRIPTYLINE [Suspect]
     Active Substance: AMITRIPTYLINE
     Route: 048
  3. ATORVASTATIN [Suspect]
     Active Substance: ATORVASTATIN
     Route: 048
  4. OMEPRAZOLE. [Suspect]
     Active Substance: OMEPRAZOLE
     Route: 048
  5. DICYCLOMINE [Suspect]
     Active Substance: DICYCLOMINE HYDROCHLORIDE
     Route: 048
  6. MELOXICAM. [Suspect]
     Active Substance: MELOXICAM
     Route: 048
  7. METOPROLOL. [Suspect]
     Active Substance: METOPROLOL
     Route: 048
  8. POTASSIUM SALTS [Suspect]
     Active Substance: UNSPECIFIED INGREDIENT
     Route: 048
  9. LISINOPRIL. [Suspect]
     Active Substance: LISINOPRIL
     Route: 048
  10. HISTAMINE-2 BLOCKER [Suspect]
     Active Substance: UNSPECIFIED INGREDIENT
     Route: 048
  11. AMLODIPINE [Suspect]
     Active Substance: AMLODIPINE BESYLATE
     Route: 048
  12. PRAZOSIN [Suspect]
     Active Substance: PRAZOSIN
     Route: 048
  13. SPIRONOLACTONE. [Suspect]
     Active Substance: SPIRONOLACTONE
     Route: 048

REACTIONS (2)
  - Toxicity to various agents [Fatal]
  - Completed suicide [Fatal]
